FAERS Safety Report 21466518 (Version 1)
Quarter: 2022Q4

REPORT INFORMATION
  Report Type: Other
  Country: US (occurrence: None)
  Receive Date: 20221017
  Receipt Date: 20221017
  Transmission Date: 20230112
  Serious: Yes (Hospitalization)
  Sender: FDA-Public Use
  Company Number: US-ROCHE-3197528

PATIENT
  Age: 81 Year
  Sex: Female

DRUGS (3)
  1. XELODA [Suspect]
     Active Substance: CAPECITABINE
     Indication: Appendix cancer
     Dosage: TAKE 3 TABLET(S) BY MOUTH IN THE MORNING AND TAKE 2 TABLET(S) BY MOUTH IN THE EVENING 1 WEEK(S) ON
     Route: 048
  2. XELODA [Suspect]
     Active Substance: CAPECITABINE
     Indication: Retroperitoneal cancer
  3. XELODA [Suspect]
     Active Substance: CAPECITABINE
     Indication: Metastases to peritoneum

REACTIONS (3)
  - Dizziness [Unknown]
  - Balance disorder [Unknown]
  - Off label use [Unknown]
